FAERS Safety Report 8599381 (Version 2)
Quarter: 2012Q4

REPORT INFORMATION
  Report Type: 
  Country: FR (occurrence: FR)
  Receive Date: 20120605
  Receipt Date: 20121210
  Transmission Date: 20130627
  Serious: Yes (Other)
  Sender: FDA-Public Use
  Company Number: FR-GLAXOSMITHKLINE-B0804970A

PATIENT
  Age: 62 None
  Sex: Female

DRUGS (8)
  1. AVANDAMET [Suspect]
     Indication: PRODUCT USED FOR UNKNOWN INDICATION
     Dosage: 2TAB per day
     Route: 048
     Dates: start: 2004, end: 20101008
  2. JANUVIA [Concomitant]
     Dosage: 100MG Per day
     Route: 048
  3. NOVONORM [Concomitant]
     Route: 048
  4. RILMENIDINE [Concomitant]
     Dates: start: 20100908
  5. CREON [Concomitant]
     Route: 048
  6. KARDEGIC [Concomitant]
     Dosage: 75MG Per day
  7. CRESTOR [Concomitant]
  8. RAMIPRIL [Concomitant]
     Dosage: 10MG Per day

REACTIONS (18)
  - Myalgia [Not Recovered/Not Resolved]
  - Tendon pain [Recovered/Resolved]
  - Gait disturbance [Not Recovered/Not Resolved]
  - Paraesthesia [Recovered/Resolved]
  - Blindness [Recovered/Resolved]
  - Gastrointestinal disorder [Recovered/Resolved]
  - Abdominal pain upper [Recovered/Resolved]
  - Respiratory disorder [Not Recovered/Not Resolved]
  - Asthenia [Not Recovered/Not Resolved]
  - General physical health deterioration [Not Recovered/Not Resolved]
  - Cardiac disorder [Not Recovered/Not Resolved]
  - Burning sensation [Recovered/Resolved]
  - Muscle spasms [Recovered/Resolved]
  - Hypoaesthesia [Recovered/Resolved]
  - Hyporeflexia [Recovered/Resolved]
  - Ventricular hyperkinesia [Not Recovered/Not Resolved]
  - Aortic valve incompetence [Not Recovered/Not Resolved]
  - Arteriosclerosis [Not Recovered/Not Resolved]
